FAERS Safety Report 22052474 (Version 1)
Quarter: 2023Q1

REPORT INFORMATION
  Report Type: Spontaneous
  Country: GB (occurrence: GB)
  Receive Date: 20230302
  Receipt Date: 20230302
  Transmission Date: 20230418
  Serious: Yes (Life-Threatening, Hospitalization, Other)
  Sender: FDA-Public Use
  Company Number: None

PATIENT
  Age: 76 Year
  Sex: Female

DRUGS (8)
  1. LINEZOLID [Suspect]
     Active Substance: LINEZOLID
     Indication: Osteomyelitis
     Dosage: UNK
     Route: 065
     Dates: end: 20230209
  2. ALLOPURINOL [Concomitant]
     Active Substance: ALLOPURINOL
     Indication: Product used for unknown indication
     Dosage: UNK
     Route: 065
     Dates: start: 20220801
  3. APIXABAN [Concomitant]
     Active Substance: APIXABAN
     Indication: Atrial fibrillation
     Dosage: UNK
     Route: 065
  4. BISOPROLOL [Concomitant]
     Active Substance: BISOPROLOL
     Indication: Atrial fibrillation
     Dosage: UNK
     Route: 065
  5. COLCHICINE [Concomitant]
     Active Substance: COLCHICINE
     Indication: Gout
     Dosage: UNK
     Route: 065
     Dates: start: 20220922, end: 20230213
  6. FUROSEMIDE [Concomitant]
     Active Substance: FUROSEMIDE
     Indication: Cardiac failure congestive
     Dosage: UNK
     Route: 065
     Dates: start: 20160201
  7. LEVOTHYROXINE [Concomitant]
     Active Substance: LEVOTHYROXINE
     Indication: Hypothyroidism
     Dosage: UNK
     Route: 065
  8. PRAMIPEXOLE [Concomitant]
     Active Substance: PRAMIPEXOLE
     Indication: Restless legs syndrome
     Dosage: UNK
     Route: 065
     Dates: start: 20100801

REACTIONS (2)
  - Gastrointestinal haemorrhage [Not Recovered/Not Resolved]
  - Platelet disorder [Not Recovered/Not Resolved]

NARRATIVE: CASE EVENT DATE: 20230208
